FAERS Safety Report 4368674-1 (Version None)
Quarter: 2004Q2

REPORT INFORMATION
  Report Type: 
  Country: None (occurrence: None)
  Receive Date: 20040602
  Receipt Date: 20040518
  Transmission Date: 20050107
  Serious: Yes (Death, Hospitalization)
  Sender: FDA-Public Use
  Company Number: 04P-087-0261210-00

PATIENT
  Age: 69 Year
  Sex: Male
  Weight: 50 kg

DRUGS (4)
  1. OMNICEF [Suspect]
     Indication: NASOPHARYNGITIS
     Dosage: ORAL
     Route: 048
     Dates: start: 20020827
  2. CEFTERAM PIVOXIL [Concomitant]
  3. MINOCYCLINE HCL [Concomitant]
  4. STEROID [Concomitant]

REACTIONS (8)
  - ACUTE RESPIRATORY DISTRESS SYNDROME [None]
  - EXANTHEM [None]
  - HYPEREOSINOPHILIC SYNDROME [None]
  - HYPERSENSITIVITY [None]
  - INFLAMMATION [None]
  - NASAL CONGESTION [None]
  - PNEUMONIA [None]
  - RESPIRATORY FAILURE [None]
